FAERS Safety Report 5594952-4 (Version None)
Quarter: 2007Q4

REPORT INFORMATION
  Report Type: 
  Country: None (occurrence: None)
  Receive Date: 20071218
  Receipt Date: 20071004
  Transmission Date: 20080405
  Serious: Yes (Hospitalization, Other)
  Sender: FDA-Public Use
  Company Number: 2006095530

PATIENT
  Age: 73 Year
  Sex: Male
  Weight: 83 kg

DRUGS (13)
  1. BEXTRA [Suspect]
     Indication: OSTEOARTHRITIS
     Dosage: 20 MG (20 MG, 1 IN 1 D), ORAL
     Route: 048
     Dates: start: 20030115
  2. VIOXX [Suspect]
     Indication: OSTEOARTHRITIS
     Dosage: 25 MG (25 MG, 1 IN 1 D), ORAL
     Route: 048
     Dates: start: 20000515
  3. ACETAMINOPHEN [Concomitant]
  4. ASPIRIN [Concomitant]
  5. HYDROCODONE (HYDROCODONE) [Concomitant]
  6. MOBIC [Concomitant]
  7. ULTRACET (PARACETAMOL, TRAMADOL HDYROCHOLORIDE) [Concomitant]
  8. MONOPRIL [Concomitant]
  9. LISINOPRIL [Concomitant]
  10. VALSARTAN [Concomitant]
  11. DIGOXIN [Concomitant]
  12. ACETYLSALICYLIC ACID SRT [Concomitant]
  13. ORPHENADRINE CITRATE [Concomitant]

REACTIONS (2)
  - MYOCARDIAL INFARCTION [None]
  - THROMBOSIS [None]
